FAERS Safety Report 8460669-1 (Version None)
Quarter: 2012Q2

REPORT INFORMATION
  Report Type: 
  Country: None (occurrence: None)
  Receive Date: 20120622
  Receipt Date: 20120621
  Transmission Date: 20120825
  Serious: Yes (Death)
  Sender: FDA-Public Use
  Company Number: PHHY2012JP029587

PATIENT
  Age: 48 Year
  Sex: Male

DRUGS (5)
  1. MYCOPHENOLATE MOFETIL [Concomitant]
     Indication: LIVER TRANSPLANT REJECTION
     Route: 048
  2. METHYLPREDNISOLONE [Concomitant]
     Indication: LIVER TRANSPLANT REJECTION
     Dosage: UNK UKN, UNK
  3. SULFAMETHOXAZOLE AND TRIMETHOPRIM [Concomitant]
     Indication: LIVER TRANSPLANT REJECTION
     Route: 048
  4. NEORAL [Suspect]
     Indication: PROPHYLAXIS AGAINST TRANSPLANT REJECTION
     Dosage: 50 MG, DAILY
     Route: 048
  5. PREDNISOLONE [Concomitant]
     Indication: LIVER TRANSPLANT REJECTION
     Dosage: UNK UKN, UNK

REACTIONS (2)
  - DISEASE RECURRENCE [None]
  - ADULT T-CELL LYMPHOMA/LEUKAEMIA [None]
